FAERS Safety Report 5288772-8 (Version None)
Quarter: 2007Q2

REPORT INFORMATION
  Report Type: 
  Country: None (occurrence: None)
  Receive Date: 20070405
  Receipt Date: 20070402
  Transmission Date: 20071010
  Serious: Yes (Death, Hospitalization)
  Sender: FDA-Public Use
  Company Number: DE-SANOFI-SYNTHELABO-F04200700018

PATIENT
  Sex: Male

DRUGS (8)
  1. FOLINIC ACID [Suspect]
     Indication: GASTRIC CANCER
     Route: 041
     Dates: start: 20060821, end: 20060821
  2. FLUOROURACIL [Suspect]
     Indication: GASTRIC CANCER
     Route: 041
     Dates: start: 20060821, end: 20060821
  3. FORTECORTIN [Concomitant]
     Indication: PREMEDICATION
     Route: 042
     Dates: start: 20060801, end: 20060801
  4. FORTECORTIN [Concomitant]
     Route: 048
     Dates: start: 20060801, end: 20060801
  5. KEVATRIL [Concomitant]
     Indication: PREMEDICATION
     Route: 042
     Dates: start: 20060801, end: 20060801
  6. ELOXATIN [Suspect]
     Indication: GASTRIC CANCER
     Route: 041
     Dates: start: 20060821, end: 20060821
  7. DOCETAXEL [Suspect]
     Indication: GASTRIC CANCER
     Route: 041
     Dates: start: 20060821, end: 20060821
  8. SODIUM CHLORIDE [Concomitant]
     Indication: PREMEDICATION
     Dosage: 0.9 %
     Route: 042
     Dates: start: 20060801, end: 20060801

REACTIONS (5)
  - ASCITES [None]
  - GENERAL PHYSICAL HEALTH DETERIORATION [None]
  - NAUSEA [None]
  - NEOPLASM PROGRESSION [None]
  - VOMITING [None]
